FAERS Safety Report 13577518 (Version 1)
Quarter: 2017Q2

REPORT INFORMATION
  Report Type: Spontaneous
  Country: US (occurrence: US)
  Receive Date: 20170524
  Receipt Date: 20170524
  Transmission Date: 20170830
  Serious: Yes (Death)
  Sender: FDA-Public Use
  Company Number: None

PATIENT
  Age: 56 Year
  Sex: Male

DRUGS (1)
  1. IMATINIB MESYLATE 400MG TABS [Suspect]
     Active Substance: IMATINIB MESYLATE
     Indication: SKIN CANCER
     Route: 048
     Dates: start: 20170330

REACTIONS (1)
  - Death [None]

NARRATIVE: CASE EVENT DATE: 20170524
